FAERS Safety Report 25968903 (Version 2)
Quarter: 2025Q4

REPORT INFORMATION
  Report Type: Spontaneous
  Country: US (occurrence: US)
  Receive Date: 20251028
  Receipt Date: 20251204
  Transmission Date: 20260117
  Serious: No
  Sender: CELLTRION
  Company Number: US-CELLTRION INC.-2024US032350

PATIENT

DRUGS (8)
  1. INFLIXIMAB [Suspect]
     Active Substance: INFLIXIMAB
     Indication: Periorbital inflammation
     Dosage: 10 MG/KG
  2. RITUXIMAB [Suspect]
     Active Substance: RITUXIMAB
     Indication: Periorbital inflammation
     Dosage: 1 G ADMINISTERED TWICE, 2 WEEKS APART
  3. METHOTREXATE [Concomitant]
     Active Substance: METHOTREXATE
     Dosage: 15 MG ORALLY ONCE A WEEK FOR 2 MONTHS
     Route: 048
  4. MYCOPHENOLATE MOFETIL [Concomitant]
     Active Substance: MYCOPHENOLATE MOFETIL
     Indication: Product used for unknown indication
     Dosage: 1000 MG TWICE DAILY
  5. MYCOPHENOLATE MOFETIL [Concomitant]
     Active Substance: MYCOPHENOLATE MOFETIL
     Dosage: 1 G TWICE A DAY
  6. PREDNISONE [Concomitant]
     Active Substance: PREDNISONE
     Dosage: 50 MG
     Route: 048
  7. TOCILIZUMAB [Concomitant]
     Active Substance: TOCILIZUMAB
     Dosage: 8 MG/KG
  8. CYCLOPHOSPHAMIDE [Concomitant]
     Active Substance: CYCLOPHOSPHAMIDE
     Dosage: 1 MG/KG IN CONJUNCTION WITH A DAILY FLUID INTAKE EXCEEDING 3 L
     Route: 048

REACTIONS (1)
  - Drug ineffective for unapproved indication [Unknown]
